FAERS Safety Report 7453598-3 (Version None)
Quarter: 2011Q2

REPORT INFORMATION
  Report Type: 
  Country: None (occurrence: None)
  Receive Date: 20110502
  Receipt Date: 20110422
  Transmission Date: 20111010
  Serious: Yes (Other)
  Sender: FDA-Public Use
  Company Number: IN-BAXTER-2010BH029948

PATIENT

DRUGS (2)
  1. DEXTROSE 5% AND SODIUM CHLORIDE 0.9% IN PLASTIC CONTAINER [Suspect]
     Indication: ELECTROLYTE IMBALANCE
     Route: 042
     Dates: start: 20101206
  2. LACTATED RINGER'S [Suspect]
     Indication: ELECTROLYTE IMBALANCE
     Route: 042
     Dates: start: 20101206

REACTIONS (1)
  - CHILLS [None]
